FAERS Safety Report 24897132 (Version 1)
Quarter: 2025Q1

REPORT INFORMATION
  Report Type: Spontaneous
  Country: US (occurrence: US)
  Receive Date: 20250128
  Receipt Date: 20250128
  Transmission Date: 20250408
  Serious: Yes (Death, Hospitalization)
  Sender: JOHNSON AND JOHNSON
  Company Number: US-JNJFOC-20250156377

PATIENT
  Age: 76 Year
  Sex: Female

DRUGS (23)
  1. OPSUMIT [Suspect]
     Active Substance: MACITENTAN
     Indication: Product used for unknown indication
     Route: 048
  2. TREPROSTINIL [Suspect]
     Active Substance: TREPROSTINIL
     Indication: Pulmonary arterial hypertension
     Route: 042
     Dates: start: 20230829
  3. TREPROSTINIL [Suspect]
     Active Substance: TREPROSTINIL
     Route: 042
     Dates: start: 20230829
  4. SILDENAFIL CITRATE [Suspect]
     Active Substance: SILDENAFIL CITRATE
     Indication: Product used for unknown indication
     Route: 065
     Dates: end: 20240521
  5. METOLAZONE [Concomitant]
     Active Substance: METOLAZONE
  6. VITAMIN D2 [Concomitant]
     Active Substance: ERGOCALCIFEROL
  7. MAGNESIUM [Concomitant]
     Active Substance: MAGNESIUM
  8. DENTAN [Concomitant]
     Active Substance: SODIUM FLUORIDE
  9. PANTOPRAZOLE SODIUM [Concomitant]
     Active Substance: PANTOPRAZOLE SODIUM
  10. FISH OIL [Concomitant]
     Active Substance: FISH OIL
  11. POTASSIUM [Concomitant]
     Active Substance: POTASSIUM
  12. PREDNISOLONE [Concomitant]
     Active Substance: PREDNISOLONE
  13. WINREVAIR [Concomitant]
     Active Substance: SOTATERCEPT-CSRK
  14. TORSEMIDE [Concomitant]
     Active Substance: TORSEMIDE
  15. OXYGEN [Concomitant]
     Active Substance: OXYGEN
  16. SIMVASTATIN [Concomitant]
     Active Substance: SIMVASTATIN
  17. NEPAFENAC [Concomitant]
     Active Substance: NEPAFENAC
  18. BROMFENAC [Concomitant]
     Active Substance: BROMFENAC
  19. RESTASIS [Concomitant]
     Active Substance: CYCLOSPORINE
  20. FLUTICASONE PROPIONATE [Concomitant]
     Active Substance: FLUTICASONE PROPIONATE
  21. ATENOLOL [Concomitant]
     Active Substance: ATENOLOL
  22. MIRALAX [Concomitant]
     Active Substance: POLYETHYLENE GLYCOL 3350
  23. BIFIDOBACTERIUM ANIMALIS LACTIS [Concomitant]
     Active Substance: BIFIDOBACTERIUM ANIMALIS LACTIS

REACTIONS (8)
  - Death [Fatal]
  - Dyspnoea [Unknown]
  - Hypervolaemia [Unknown]
  - Influenza [Unknown]
  - COVID-19 [Unknown]
  - Fatigue [Unknown]
  - Dizziness [Unknown]
  - Chest pain [Unknown]

NARRATIVE: CASE EVENT DATE: 20241128
